FAERS Safety Report 15438504 (Version 1)
Quarter: 2018Q3

REPORT INFORMATION
  Report Type: Spontaneous
  Country: US (occurrence: US)
  Receive Date: 20180928
  Receipt Date: 20180928
  Transmission Date: 20181010
  Serious: No
  Sender: FDA-Public Use
  Company Number: PHHY2018US110702

PATIENT
  Sex: Male

DRUGS (1)
  1. FAMVIR [Suspect]
     Active Substance: FAMCICLOVIR
     Indication: HERPES ZOSTER
     Dosage: 500 MG, TID
     Route: 048

REACTIONS (4)
  - Conjunctivitis [Unknown]
  - Somnolence [Unknown]
  - Diarrhoea [Recovering/Resolving]
  - Headache [Unknown]
